FAERS Safety Report 20023949 (Version 1)
Quarter: 2021Q4

REPORT INFORMATION
  Report Type: Spontaneous
  Country: US (occurrence: US)
  Receive Date: 20211102
  Receipt Date: 20211102
  Transmission Date: 20220304
  Serious: No
  Sender: FDA-Public Use
  Company Number: US-PFIZER INC-2021555837

PATIENT
  Age: 43 Year
  Sex: Female
  Weight: 49.887 kg

DRUGS (6)
  1. IBRANCE [Suspect]
     Active Substance: PALBOCICLIB
     Indication: Breast cancer
     Dosage: 125 MG, CYCLIC (125 MG DAILY FOR 21 DAYS)
     Route: 048
     Dates: start: 20210402
  2. GOSERELIN ACETATE [Concomitant]
     Active Substance: GOSERELIN ACETATE
     Dosage: 10.8 MG (ZOLADEX 10.8 MG IMPLANT)
  3. MELATONIN [Concomitant]
     Active Substance: MELATONIN
     Dosage: 10 MG
  4. LETROZOLE [Concomitant]
     Active Substance: LETROZOLE
     Dosage: 2.5 MG
  5. ZOFRAN [Concomitant]
     Active Substance: ONDANSETRON HYDROCHLORIDE
     Dosage: 4 MG
  6. IBUPROFEN [Concomitant]
     Active Substance: IBUPROFEN
     Dosage: 100 MG

REACTIONS (2)
  - Nausea [Unknown]
  - Vomiting [Unknown]
